FAERS Safety Report 10765114 (Version 1)
Quarter: 2015Q1

REPORT INFORMATION
  Report Type: Spontaneous
  Country: US (occurrence: None)
  Receive Date: 20150204
  Receipt Date: 20150204
  Transmission Date: 20150721
  Serious: Yes (Disabling)
  Sender: FDA-Public Use
  Company Number: None

PATIENT
  Age: 65 Year
  Sex: Female
  Weight: 55.34 kg

DRUGS (9)
  1. CAL-MAG [Concomitant]
  2. LEVAQUIN [Suspect]
     Active Substance: LEVOFLOXACIN
     Indication: LOWER RESPIRATORY TRACT INFECTION
     Dosage: 1 PILL 1 X DAILY
     Route: 048
     Dates: start: 20141225, end: 20141227
  3. LEVAQUIN [Suspect]
     Active Substance: LEVOFLOXACIN
     Indication: PNEUMONIA
     Dosage: 1 PILL 1 X DAILY
     Route: 048
     Dates: start: 20141225, end: 20141227
  4. ESTROGEL [Concomitant]
     Active Substance: ESTRADIOL
  5. PROGESTERONE. [Concomitant]
     Active Substance: PROGESTERONE
  6. OMEGA 6 [Concomitant]
  7. IBRUPROFEN [Concomitant]
  8. LEVASTATIN [Concomitant]
  9. MULTI VIT [Concomitant]

REACTIONS (10)
  - Arthralgia [None]
  - Musculoskeletal stiffness [None]
  - Nausea [None]
  - Neck pain [None]
  - Asthenia [None]
  - Chills [None]
  - Joint swelling [None]
  - Peripheral swelling [None]
  - Insomnia [None]
  - Headache [None]

NARRATIVE: CASE EVENT DATE: 20141226
